FAERS Safety Report 19163645 (Version 1)
Quarter: 2021Q2

REPORT INFORMATION
  Report Type: Spontaneous
  Country: FI (occurrence: FI)
  Receive Date: 20210421
  Receipt Date: 20210421
  Transmission Date: 20210717
  Serious: Yes (Hospitalization)
  Sender: FDA-Public Use
  Company Number: FI-ROCHE-2813744

PATIENT
  Age: 11 Year
  Sex: Male

DRUGS (5)
  1. MABTHERA [Suspect]
     Active Substance: RITUXIMAB
     Indication: NEPHROTIC SYNDROME
     Dosage: MOST RECENT DOSE WAS RECEIVED ON 26/MAR/2021
     Route: 041
     Dates: start: 20210315
  2. DITRIM DUPLO [Concomitant]
     Active Substance: SULFADIAZINE\TRIMETHOPRIM
     Indication: PROPHYLAXIS
     Route: 048
     Dates: start: 20210315
  3. SANDIMMUN NEORAL [Concomitant]
     Active Substance: CYCLOSPORINE
     Indication: NEPHROTIC SYNDROME
     Dosage: 150,MG,DAILY
     Route: 048
     Dates: start: 20120718
  4. COZAAR [Concomitant]
     Active Substance: LOSARTAN POTASSIUM
     Indication: NEPHROTIC SYNDROME
     Dosage: 12.5,MG,DAILY
     Route: 048
     Dates: start: 20120914
  5. ENALAPRIL [Concomitant]
     Active Substance: ENALAPRIL
     Indication: NEPHROTIC SYNDROME
     Dosage: 10,MG,DAILY
     Route: 048
     Dates: start: 20120717

REACTIONS (4)
  - Tendonitis [Not Recovered/Not Resolved]
  - Pyrexia [Not Recovered/Not Resolved]
  - Arthralgia [Not Recovered/Not Resolved]
  - Gait inability [Not Recovered/Not Resolved]

NARRATIVE: CASE EVENT DATE: 20210325
